FAERS Safety Report 9684668 (Version 1)
Quarter: 2013Q4

REPORT INFORMATION
  Report Type: Spontaneous
  Country: US (occurrence: US)
  Receive Date: 20131112
  Receipt Date: 20131112
  Transmission Date: 20140711
  Serious: Yes (Hospitalization, Other)
  Sender: FDA-Public Use
  Company Number: US-ELI_LILLY_AND_COMPANY-US201311003131

PATIENT
  Age: 87 Year
  Sex: Male

DRUGS (3)
  1. HUMALOG 25% LISPRO, 75% NPL [Suspect]
     Indication: DIABETES MELLITUS
     Route: 065
  2. HUMALOG 25% LISPRO, 75% NPL [Suspect]
     Indication: DIABETES MELLITUS
     Dosage: UNK
     Route: 065
  3. LANTUS [Concomitant]
     Dosage: UNK

REACTIONS (7)
  - Hip fracture [Unknown]
  - Lower limb fracture [Unknown]
  - Fall [Recovered/Resolved]
  - Visual acuity reduced [Not Recovered/Not Resolved]
  - Malaise [Unknown]
  - Hypoglycaemia [Unknown]
  - Incorrect dose administered [Unknown]
